FAERS Safety Report 6250599-8 (Version None)
Quarter: 2009Q2

REPORT INFORMATION
  Report Type: 
  Country: None (occurrence: None)
  Receive Date: 20090626
  Receipt Date: 20090611
  Transmission Date: 20091009
  Serious: No
  Sender: FDA-Public Use
  Company Number: 001023

PATIENT
  Sex: Male

DRUGS (2)
  1. VIMPAT [Suspect]
     Indication: EPILEPSY
     Dosage: (50 MG BID), (100 MG BID)
     Dates: end: 20090407
  2. VIMPAT [Suspect]
     Indication: EPILEPSY
     Dosage: (50 MG BID), (100 MG BID)
     Dates: start: 20081224

REACTIONS (1)
  - DEATH [None]
